FAERS Safety Report 14133091 (Version 1)
Quarter: 2017Q4

REPORT INFORMATION
  Report Type: Spontaneous
  Country: US (occurrence: US)
  Receive Date: 20171026
  Receipt Date: 20171026
  Transmission Date: 20180321
  Serious: No
  Sender: FDA-Public Use
  Company Number: None

PATIENT
  Age: 34 Year
  Sex: Female
  Weight: 54 kg

DRUGS (4)
  1. VITAMIN C [Concomitant]
     Active Substance: ASCORBIC ACID
  2. GABAPENTIN 300 MG CAPSULE [Suspect]
     Active Substance: GABAPENTIN
     Indication: PAIN
     Dosage: ?          QUANTITY:2 CAPSULE(S);?
     Route: 048
     Dates: start: 20150201, end: 20170802
  3. GINGER ROOT [Concomitant]
     Active Substance: GINGER
  4. TURMERIC [Concomitant]
     Active Substance: HERBALS\TURMERIC

REACTIONS (5)
  - Overdose [None]
  - Withdrawal syndrome [None]
  - Drug dependence [None]
  - Accidental overdose [None]
  - Memory impairment [None]

NARRATIVE: CASE EVENT DATE: 20161010
